FAERS Safety Report 4333814-7 (Version None)
Quarter: 2004Q2

REPORT INFORMATION
  Report Type: 
  Country: None (occurrence: None)
  Receive Date: 20040407
  Receipt Date: 20040326
  Transmission Date: 20050107
  Serious: Yes (Hospitalization)
  Sender: FDA-Public Use
  Company Number: FR-BRISTOL-MYERS SQUIBB COMPANY-12542973

PATIENT
  Age: 75 Year
  Sex: Male

DRUGS (1)
  1. VASTEN TABS 20 MG [Suspect]
     Indication: CORONARY ARTERY DISEASE
     Route: 048
     Dates: start: 20040301, end: 20040301

REACTIONS (4)
  - CHROMATURIA [None]
  - HYPOKINESIA [None]
  - RENAL FAILURE [None]
  - RHABDOMYOLYSIS [None]
